FAERS Safety Report 22821796 (Version 2)
Quarter: 2023Q4

REPORT INFORMATION
  Report Type: Spontaneous
  Country: US (occurrence: US)
  Receive Date: 20230814
  Receipt Date: 20231011
  Transmission Date: 20240110
  Serious: No
  Sender: FDA-Public Use
  Company Number: US-SA-SAC20230814000187

PATIENT
  Age: 11 Year
  Sex: Male

DRUGS (7)
  1. DUPIXENT [Suspect]
     Active Substance: DUPILUMAB
     Indication: Dermatitis atopic
     Dosage: 200 MG, QOW
     Route: 058
     Dates: start: 20230706
  2. ALBUTEROL SULFATE [Concomitant]
     Active Substance: ALBUTEROL SULFATE
     Dosage: UNK
  3. FLOVENT HFA [Concomitant]
     Active Substance: FLUTICASONE PROPIONATE
     Dosage: 100 MG
  4. INFLECTRA [Concomitant]
     Active Substance: INFLIXIMAB-DYYB
     Dosage: UNK
  5. ZYRTEC [Concomitant]
     Active Substance: CETIRIZINE HYDROCHLORIDE
     Dosage: UNK
  6. EPIPEN [Concomitant]
     Active Substance: EPINEPHRINE
     Dosage: UNK
  7. VITAMIN D NOS [Concomitant]
     Active Substance: VITAMIN D NOS

REACTIONS (8)
  - Infection [Unknown]
  - Pyrexia [Unknown]
  - Hyperhidrosis [Unknown]
  - Diarrhoea [Not Recovered/Not Resolved]
  - Erythema of eyelid [Not Recovered/Not Resolved]
  - Eye irritation [Not Recovered/Not Resolved]
  - Product dose omission in error [Unknown]
  - Therapeutic response decreased [Unknown]

NARRATIVE: CASE EVENT DATE: 20230101
